FAERS Safety Report 6577864-9 (Version None)
Quarter: 2010Q1

REPORT INFORMATION
  Report Type: 
  Country: None (occurrence: None)
  Receive Date: 20100211
  Receipt Date: 20100202
  Transmission Date: 20100710
  Serious: Yes (Hospitalization)
  Sender: FDA-Public Use
  Company Number: CN-ROCHE-683120

PATIENT
  Age: 79 Year
  Sex: Female
  Weight: 52.5 kg

DRUGS (5)
  1. XELODA [Suspect]
     Dosage: 15-D ADMINISTRATION FOLLOWED BY 7-D REST FOR EACH CYCLE.
     Route: 048
     Dates: start: 20091210, end: 20100201
  2. UNSPECIFIED DRUG [Concomitant]
     Indication: PROPHYLAXIS
     Dosage: THE BRAND NAME WAS REPORTED AS ^LEUCOGEN^.
     Route: 048
     Dates: start: 20091210, end: 20100201
  3. UNSPECIFIED DRUG [Concomitant]
     Dosage: THE BRAND NAME WAS ^COMPOUND GLYCYRRHIZIN CAPSULES ^.
     Route: 048
     Dates: start: 20091210, end: 20100201
  4. UNSPECIFIED DRUG [Concomitant]
     Dates: start: 20100101
  5. PARACETAMOL [Concomitant]
     Indication: INFLUENZA
     Dosage: BRAND NAME AS BUFFERIN. RECEIVING IN THE EVENING.
     Route: 048
     Dates: start: 20100126, end: 20100129

REACTIONS (5)
  - BLOOD ALBUMIN DECREASED [None]
  - DRY SKIN [None]
  - INFLUENZA [None]
  - OEDEMA PERIPHERAL [None]
  - VOMITING [None]
